FAERS Safety Report 8907656 (Version 1)
Quarter: 2012Q4

REPORT INFORMATION
  Report Type: 
  Country: US (occurrence: US)
  Receive Date: 20121113
  Receipt Date: 20121113
  Transmission Date: 20130627
  Serious: No
  Sender: FDA-Public Use
  Company Number: US-AMGEN-USASP2012039249

PATIENT
  Age: 66 Year
  Sex: Female
  Weight: 70.3 kg

DRUGS (8)
  1. ENBREL [Suspect]
     Indication: PRODUCT USED FOR UNKNOWN INDICATION
     Dosage: 50 mg/ml, qwk
     Route: 058
  2. AMLODIPINE [Concomitant]
     Dosage: 5 mg, UNK
  3. LYRICA [Concomitant]
     Dosage: 25 mg, UNK
  4. LISINOPRIL [Concomitant]
     Dosage: 5 mg, UNK
  5. CALCIUM D                          /00944201/ [Concomitant]
     Dosage: UNK
  6. MULTIVITAMINS, PLAIN [Concomitant]
     Dosage: UNK
  7. FOLIC ACID [Concomitant]
     Dosage: UNK
  8. METHOTREXATE [Concomitant]
     Dosage: 20 mg, UNK

REACTIONS (1)
  - Abdominal discomfort [Unknown]
